FAERS Safety Report 9320211 (Version 2)
Quarter: 2013Q2

REPORT INFORMATION
  Report Type: Report from Study
  Country: US (occurrence: US)
  Receive Date: 20130530
  Receipt Date: 20130628
  Transmission Date: 20140414
  Serious: No
  Sender: FDA-Public Use
  Company Number: US-VERTEX PHARMACEUTICALS INC-2013-006564

PATIENT
  Age: 9 Year
  Sex: Male
  Weight: 43 kg

DRUGS (5)
  1. VX-770 [Suspect]
     Indication: CYSTIC FIBROSIS
     Dosage: 150 MG, BID
     Dates: start: 20120517, end: 201212
  2. VX-770 [Suspect]
     Dosage: 150 MG, BID
     Dates: start: 201302, end: 20130508
  3. CREON 12000 [Concomitant]
     Dosage: 4-5 CAPSULES WITH MEALS, 3 WITH SNACKS
  4. CYTOTEC [Concomitant]
     Dosage: 100 ?G, QD
  5. ALBUTEROL [Concomitant]
     Dosage: UNK, PRN

REACTIONS (1)
  - Sinusitis [Recovered/Resolved]
